FAERS Safety Report 24167703 (Version 2)
Quarter: 2025Q1

REPORT INFORMATION
  Report Type: Spontaneous
  Country: US (occurrence: US)
  Receive Date: 20240802
  Receipt Date: 20250120
  Transmission Date: 20250408
  Serious: No
  Sender: ROCHE
  Company Number: US-ROCHE-10000047294

PATIENT
  Sex: Male

DRUGS (3)
  1. HEMLIBRA [Suspect]
     Active Substance: EMICIZUMAB-KXWH
     Indication: Factor VIII deficiency
     Dosage: MORE DOSAGE INFO: 105MG/7ML AND 150MG/ML
     Route: 058
     Dates: start: 202205
  2. HEMLIBRA [Suspect]
     Active Substance: EMICIZUMAB-KXWH
     Dosage: MORE DOSAGE INFO: 105MG/7ML AND 150MG/ML
     Route: 058
     Dates: start: 202405
  3. HEMLIBRA [Suspect]
     Active Substance: EMICIZUMAB-KXWH
     Dosage: MORE DOSAGE INFORMATION AND FREQUENCY: INJECT 250MG(1.66ML) SUBCUTANEOUSLY EVERY OTHER WEEK, SINGLE
     Route: 058
     Dates: start: 202002

REACTIONS (3)
  - Haemorrhage [Unknown]
  - Injury [Unknown]
  - Haemorrhage [Unknown]
